FAERS Safety Report 10098956 (Version 1)
Quarter: 2014Q2

REPORT INFORMATION
  Report Type: Spontaneous
  Country: FR (occurrence: FR)
  Receive Date: 20140423
  Receipt Date: 20140423
  Transmission Date: 20141212
  Serious: Yes (Death, Hospitalization)
  Sender: FDA-Public Use
  Company Number: PHHY2014FR047004

PATIENT
  Age: 75 Year
  Sex: Male

DRUGS (7)
  1. DEXRAZOXANE HYDROCHLORIDE [Suspect]
     Dosage: UNK UKN, UNK
     Route: 042
     Dates: start: 20101018, end: 20110110
  2. DOXORUBICIN EBEWE [Suspect]
     Indication: B-CELL LYMPHOMA STAGE IV
     Dosage: 50 MG/M2, UNK
     Route: 042
     Dates: start: 20101018, end: 20110110
  3. PREDNISOLONE [Suspect]
     Dosage: 40 MG, DAILY
     Route: 048
     Dates: start: 20101018, end: 20110110
  4. MABTHERA [Suspect]
     Indication: B-CELL LYMPHOMA STAGE IV
     Dosage: 375 MG/M2, UNK
     Route: 042
     Dates: start: 20101018, end: 20110110
  5. ENDOXAN [Suspect]
     Indication: B-CELL LYMPHOMA STAGE IV
     Dosage: 750 MG/M2, UNK
     Route: 042
     Dates: start: 20101018, end: 20110110
  6. ETOPOSIDE TEVA [Suspect]
     Indication: B-CELL LYMPHOMA STAGE IV
     Dosage: UNK UKN, UNK
     Route: 042
     Dates: start: 20101129, end: 20110110
  7. VINCRISTINE TEVA [Suspect]
     Indication: B-CELL LYMPHOMA STAGE IV
     Dosage: 1.4 MG/M2, UNK
     Route: 042
     Dates: start: 20101018, end: 20101108

REACTIONS (1)
  - Progressive multifocal leukoencephalopathy [Fatal]
